FAERS Safety Report 11625953 (Version 4)
Quarter: 2016Q1

REPORT INFORMATION
  Report Type: Spontaneous
  Country: US (occurrence: US)
  Receive Date: 20151013
  Receipt Date: 20160111
  Transmission Date: 20160525
  Serious: Yes (Hospitalization, Other)
  Sender: FDA-Public Use
  Company Number: US-VIIV HEALTHCARE LIMITED-US2015144159

PATIENT
  Age: 75 Year
  Sex: Male

DRUGS (10)
  1. TIVICAY [Suspect]
     Active Substance: DOLUTEGRAVIR SODIUM
     Indication: ACQUIRED IMMUNODEFICIENCY SYNDROME
  2. ENALAPRIL [Concomitant]
     Active Substance: ENALAPRIL
  3. SERTRALINE [Concomitant]
     Active Substance: SERTRALINE HYDROCHLORIDE
  4. CLOPIDOGREL BISULFATE. [Concomitant]
     Active Substance: CLOPIDOGREL BISULFATE
  5. METOPROLOL XL [Concomitant]
     Active Substance: METOPROLOL SUCCINATE
  6. ASPIRIN (BABY) [Concomitant]
     Active Substance: ASPIRIN
  7. ACYCLOVIR. [Concomitant]
     Active Substance: ACYCLOVIR
  8. FERREX [Concomitant]
  9. PREZCOBIX [Concomitant]
     Active Substance: COBICISTAT\DARUNAVIR ETHANOLATE
  10. TIVICAY [Suspect]
     Active Substance: DOLUTEGRAVIR SODIUM
     Indication: HIV INFECTION
     Dosage: 50 MG, QD
     Route: 065
     Dates: start: 20150914

REACTIONS (3)
  - Catheterisation cardiac [Recovering/Resolving]
  - Coronary artery occlusion [Unknown]
  - Coronary artery bypass [Recovering/Resolving]

NARRATIVE: CASE EVENT DATE: 20150917
